FAERS Safety Report 9255076 (Version 1)
Quarter: 2013Q2

REPORT INFORMATION
  Report Type: Report from Study
  Country: CA (occurrence: CA)
  Receive Date: 20130425
  Receipt Date: 20130425
  Transmission Date: 20140414
  Serious: Yes (Other)
  Sender: FDA-Public Use
  Company Number: CA-JNJFOC-20121010236

PATIENT
  Sex: Female
  Weight: 63 kg

DRUGS (3)
  1. REMICADE [Suspect]
     Indication: CROHN^S DISEASE
     Route: 042
     Dates: start: 20080820, end: 20120204
  2. ALESSE [Concomitant]
     Indication: CONTRACEPTION
     Route: 065
  3. 6MP [Concomitant]
     Dosage: FREQUENCY: DIE
     Route: 048

REACTIONS (2)
  - Nuclear magnetic resonance imaging abnormal [Unknown]
  - Paraesthesia [Recovering/Resolving]
